FAERS Safety Report 7400071-4 (Version None)
Quarter: 2011Q2

REPORT INFORMATION
  Report Type: 
  Country: None (occurrence: None)
  Receive Date: 20110405
  Receipt Date: 20110405
  Transmission Date: 20111010
  Serious: No
  Sender: FDA-Public Use
  Company Number: None

PATIENT
  Age: 18 Year
  Sex: Female
  Weight: 65 kg

DRUGS (2)
  1. VANCOMYCIN [Suspect]
     Indication: ABSCESS
     Dosage: 1 GRAM IV Q 12 ?
     Dates: start: 20100612
  2. TRAMADOL [Concomitant]

REACTIONS (5)
  - FEELING HOT [None]
  - PRURITUS [None]
  - ERYTHEMA [None]
  - INFUSION RELATED REACTION [None]
  - DIZZINESS [None]
